FAERS Safety Report 4553915-8 (Version None)
Quarter: 2005Q1

REPORT INFORMATION
  Report Type: 
  Country: None (occurrence: None)
  Receive Date: 20050118
  Receipt Date: 20041126
  Transmission Date: 20050727
  Serious: Yes (Hospitalization)
  Sender: FDA-Public Use
  Company Number: PHHO2004IT16771

PATIENT
  Age: 51 Year
  Sex: Male

DRUGS (3)
  1. LASIX [Concomitant]
     Indication: OEDEMA PERIPHERAL
  2. GLEEVEC [Suspect]
     Indication: CHORDOMA
     Dosage: 800 MG, QD
     Route: 048
     Dates: start: 20041030
  3. SOLDESAM [Concomitant]

REACTIONS (2)
  - PARAPLEGIA [None]
  - SPINAL CORD COMPRESSION [None]
